FAERS Safety Report 10457279 (Version 1)
Quarter: 2014Q3

REPORT INFORMATION
  Report Type: Report from Study
  Country: ES (occurrence: ES)
  Receive Date: 20140916
  Receipt Date: 20140916
  Transmission Date: 20150326
  Serious: Yes (Other)
  Sender: FDA-Public Use
  Company Number: ES-ASTRAZENECA-2014SE68291

PATIENT
  Age: 70 Year
  Sex: Male

DRUGS (4)
  1. ACETAMINOPHEN. [Concomitant]
     Active Substance: ACETAMINOPHEN
  2. KETOPROFEN. [Concomitant]
     Active Substance: KETOPROFEN
  3. QUETIAPINE [Suspect]
     Active Substance: QUETIAPINE
     Route: 048
  4. BENZODIAZEPINES [Concomitant]
     Active Substance: BENZODIAZEPINE

REACTIONS (2)
  - Accidental overdose [Unknown]
  - Poisoning [Unknown]
